FAERS Safety Report 8263400-8 (Version None)
Quarter: 2012Q2

REPORT INFORMATION
  Report Type: 
  Country: None (occurrence: None)
  Receive Date: 20120405
  Receipt Date: 20120330
  Transmission Date: 20120825
  Serious: Yes (Hospitalization)
  Sender: FDA-Public Use
  Company Number: FR-PFIZER INC-2012081144

PATIENT
  Age: 46 Year
  Sex: Female

DRUGS (2)
  1. RELPAX [Suspect]
     Dosage: 1 DF, SINGLE
     Route: 048
     Dates: start: 20120216
  2. RELPAX [Suspect]
     Indication: MIGRAINE
     Dosage: 1 DF, AS NEEDED
     Route: 048

REACTIONS (1)
  - SPLENIC INFARCTION [None]
